FAERS Safety Report 5984710-0 (Version None)
Quarter: 2008Q4

REPORT INFORMATION
  Report Type: 
  Country: None (occurrence: None)
  Receive Date: 20081208
  Receipt Date: 20081201
  Transmission Date: 20090506
  Serious: Yes (Hospitalization, Other)
  Sender: FDA-Public Use
  Company Number: US-ROXANE LABORATORIES, INC.-2008-RO-00318RO

PATIENT
  Age: 18 Year
  Sex: Female

DRUGS (14)
  1. AZATHIOPRINE [Suspect]
     Indication: CROHN'S DISEASE
     Dosage: 75MG
  2. AZATHIOPRINE [Suspect]
  3. AZATHIOPRINE [Suspect]
     Dosage: 125MG
  4. AZATHIOPRINE [Suspect]
     Dosage: 125MG
  5. PREDNISONE TAB [Suspect]
     Indication: CROHN'S DISEASE
  6. PREDNISONE TAB [Suspect]
  7. PREDNISONE TAB [Suspect]
     Route: 048
  8. INFLIXIMAB [Suspect]
     Indication: CROHN'S DISEASE
  9. INFLIXIMAB [Suspect]
  10. INFLIXIMAB [Suspect]
  11. ASACOL [Suspect]
     Indication: DIARRHOEA HAEMORRHAGIC
  12. ACYCLOVIR [Suspect]
     Indication: EPSTEIN-BARR VIRUS INFECTION
     Route: 042
  13. DEXAMETHASONE [Concomitant]
     Indication: HISTIOCYTOSIS HAEMATOPHAGIC
     Route: 042
  14. DEXAMETHASONE [Concomitant]
     Route: 048

REACTIONS (15)
  - ACROCHORDON [None]
  - ACUTE RESPIRATORY DISTRESS SYNDROME [None]
  - BLOOD TRIGLYCERIDES INCREASED [None]
  - BONE MARROW FAILURE [None]
  - CROHN'S DISEASE [None]
  - CYTOMEGALOVIRUS ANTIBODY POSITIVE [None]
  - DIARRHOEA HAEMORRHAGIC [None]
  - EPSTEIN-BARR VIRUS INFECTION [None]
  - HEPATITIS [None]
  - HISTIOCYTOSIS HAEMATOPHAGIC [None]
  - INFECTIOUS MONONUCLEOSIS [None]
  - INFLUENZA LIKE ILLNESS [None]
  - MOUTH ULCERATION [None]
  - SERUM FERRITIN INCREASED [None]
  - TACHYCARDIA [None]
